FAERS Safety Report 10956788 (Version 1)
Quarter: 2015Q1

REPORT INFORMATION
  Report Type: Spontaneous
  Country: GB (occurrence: None)
  Receive Date: 20150324
  Receipt Date: 20150324
  Transmission Date: 20150721
  Serious: Yes (Hospitalization, Disabling)
  Sender: FDA-Public Use
  Company Number: FK201501333

PATIENT
  Age: 71 Year
  Sex: Female
  Weight: 42 kg

DRUGS (8)
  1. LEVOTHYROXINE (LEVOTHYROXINE) [Concomitant]
     Active Substance: LEVOTHYROXINE
  2. PIOGLITAZONE (PIOGLITAZONE) [Concomitant]
     Active Substance: PIOGLITAZONE
  3. QUININE BISULFATE (QUININE BISULFATE) [Concomitant]
  4. METFORMIN [Concomitant]
     Active Substance: METFORMIN HYDROCHLORIDE
  5. PARACETAMOL (PARACETAMOL) [Concomitant]
     Active Substance: ACETAMINOPHEN
  6. OXALIPLATIN (MANUFACTURER UNKNOWN) (OXALIPLATIN) (OXALIPLATIN) [Suspect]
     Active Substance: OXALIPLATIN
     Indication: METASTASES TO LUNG
     Dosage: NOT OTHERWISE SPECIFIED
     Route: 042
     Dates: start: 20150225
  7. CAPECITABINE (MANUFACTURER UNKNOWN) (CAPECITABINE) (CAPECITABINE) [Suspect]
     Active Substance: CAPECITABINE
     Indication: METASTASES TO LUNG
     Route: 048
     Dates: start: 20150225, end: 20150225
  8. SIMVASTATIN (SIMVASTATIN) [Concomitant]
     Active Substance: SIMVASTATIN

REACTIONS (3)
  - Fall [None]
  - Dizziness [None]
  - Paraesthesia [None]
